FAERS Safety Report 8732773 (Version 3)
Quarter: 2012Q4

REPORT INFORMATION
  Report Type: 
  Country: US (occurrence: US)
  Receive Date: 20120820
  Receipt Date: 20120928
  Transmission Date: 20130627
  Serious: No
  Sender: FDA-Public Use
  Company Number: US-PFIZER INC-2012201775

PATIENT
  Sex: Female

DRUGS (1)
  1. LIPITOR [Suspect]
     Indication: HYPERCHOLESTEROLAEMIA
     Dosage: 10 mg, daily
     Route: 048
     Dates: start: 20120202, end: 20120702

REACTIONS (5)
  - Memory impairment [Unknown]
  - Asthenia [Unknown]
  - Dysstasia [Unknown]
  - Muscular weakness [Unknown]
  - Muscle spasms [Unknown]
